FAERS Safety Report 11021652 (Version 4)
Quarter: 2015Q4

REPORT INFORMATION
  Report Type: Spontaneous
  Country: US (occurrence: US)
  Receive Date: 20150413
  Receipt Date: 20151124
  Transmission Date: 20160304
  Serious: Yes (Hospitalization, Other)
  Sender: FDA-Public Use
  Company Number: US-BAYER-2015-116221

PATIENT
  Age: 19 Year
  Sex: Female

DRUGS (4)
  1. VALIUM [Concomitant]
     Active Substance: DIAZEPAM
     Dosage: 2 MG, BID
     Dates: start: 20130425
  2. MIRENA [Suspect]
     Active Substance: LEVONORGESTREL
     Indication: CONTRACEPTION
     Dosage: 20 MCG/24HR, CONT
     Route: 015
     Dates: start: 20120719, end: 20130501
  3. VALIUM [Concomitant]
     Active Substance: DIAZEPAM
     Dosage: 2 MG, BID
     Dates: start: 20130401
  4. DIFLUCAN [Concomitant]
     Active Substance: FLUCONAZOLE
     Dosage: 150 MG, QD
     Dates: start: 20130425

REACTIONS (13)
  - Complication of device removal [None]
  - Pelvic pain [Not Recovered/Not Resolved]
  - Abdominal pain [Not Recovered/Not Resolved]
  - Depression [None]
  - Anxiety [None]
  - Dyspareunia [Not Recovered/Not Resolved]
  - Emotional distress [None]
  - General physical health deterioration [Not Recovered/Not Resolved]
  - Pelvic inflammatory disease [Not Recovered/Not Resolved]
  - Injury [Not Recovered/Not Resolved]
  - Fallopian tube disorder [Not Recovered/Not Resolved]
  - Uterine perforation [Not Recovered/Not Resolved]
  - Device breakage [None]

NARRATIVE: CASE EVENT DATE: 201207
